FAERS Safety Report 15960046 (Version 2)
Quarter: 2019Q1

REPORT INFORMATION
  Report Type: Spontaneous
  Country: JP (occurrence: JP)
  Receive Date: 20190214
  Receipt Date: 20190301
  Transmission Date: 20190417
  Serious: Yes (Hospitalization, Other)
  Sender: FDA-Public Use
  Company Number: JP-AMGEN-JPNSP2019021257

PATIENT
  Age: 73 Year
  Sex: Female
  Weight: 33.5 kg

DRUGS (7)
  1. CALTAN [Suspect]
     Active Substance: CALCIUM CARBONATE
     Indication: HYPERPHOSPHATAEMIA
     Dosage: 500 MG, UNK (500 MG)
     Route: 048
  2. VALSARTAN. [Concomitant]
     Active Substance: VALSARTAN
     Indication: HYPERTENSION
     Dosage: 160 MG, UNK
     Route: 048
  3. PARSABIV [Suspect]
     Active Substance: ETELCALCETIDE HYDROCHLORIDE
     Indication: HYPERPARATHYROIDISM SECONDARY
     Dosage: 2.5 MG, 3 TIMES/WK (2.5 MG, Q56H)
     Route: 010
     Dates: start: 20180901
  4. ADALAT [Concomitant]
     Active Substance: NIFEDIPINE
     Indication: HYPERTENSION
     Dosage: 40 MG, UNK
     Route: 048
  5. TAKECAB [Concomitant]
     Active Substance: VONOPRAZAN FUMURATE
     Indication: GASTROOESOPHAGEAL REFLUX DISEASE
     Dosage: 10 MG, UNK
     Route: 048
  6. TAKECAB [Concomitant]
     Active Substance: VONOPRAZAN FUMURATE
     Indication: GASTROOESOPHAGEAL REFLUX DISEASE
  7. OXAROL [Suspect]
     Active Substance: MAXACALCITOL
     Indication: PRODUCT USED FOR UNKNOWN INDICATION
     Dosage: 5 MUG, 3 TIMES/WK (5 UG, Q56H)
     Route: 042
     Dates: start: 20180607

REACTIONS (2)
  - Pneumonia [Recovering/Resolving]
  - Upper respiratory tract inflammation [Not Recovered/Not Resolved]

NARRATIVE: CASE EVENT DATE: 20190123
